FAERS Safety Report 8447305-5 (Version None)
Quarter: 2012Q2

REPORT INFORMATION
  Report Type: 
  Country: None (occurrence: None)
  Receive Date: 20120619
  Receipt Date: 20120612
  Transmission Date: 20120825
  Serious: Yes (Hospitalization, Other)
  Sender: FDA-Public Use
  Company Number: PHHY2011CA106329

PATIENT
  Sex: Male

DRUGS (15)
  1. CLOZARIL [Suspect]
     Dosage: 200 UKN, UNK
     Route: 048
     Dates: start: 20120501, end: 20120501
  2. AMATINE [Concomitant]
  3. ATROPINE [Concomitant]
  4. CLONAZEPAM [Concomitant]
     Dosage: UNK
  5. CARDURA [Concomitant]
     Dosage: UNK
  6. SEROQUEL [Concomitant]
     Dosage: UNK
  7. PANTOPRAZOLE SODIUM [Concomitant]
  8. VALPROATE SODIUM [Concomitant]
     Dosage: UNK
  9. KEMADRIN [Concomitant]
     Dosage: UNK
  10. ACETAMINOPHEN [Concomitant]
     Dosage: UNK
  11. FLOMAX [Concomitant]
     Dosage: 0.4 MG, UNK
  12. VALPROATE SODIUM [Concomitant]
     Dosage: 750 MG, UNK
  13. CLOZARIL [Suspect]
     Indication: SCHIZOPHRENIA
     Dosage: 375 MG, UNK
     Route: 048
     Dates: start: 20050310
  14. CLOZARIL [Suspect]
     Dosage: UNK
     Route: 048
     Dates: start: 20100310
  15. ANTIBIOTICS [Concomitant]

REACTIONS (4)
  - DEPRESSIVE SYMPTOM [None]
  - PYREXIA [None]
  - OCULOGYRIC CRISIS [None]
  - INFLUENZA LIKE ILLNESS [None]
